FAERS Safety Report 14381847 (Version 1)
Quarter: 2018Q1

REPORT INFORMATION
  Report Type: Spontaneous
  Country: US (occurrence: US)
  Receive Date: 20180111
  Receipt Date: 20180111
  Transmission Date: 20180509
  Serious: No
  Sender: FDA-Public Use
  Company Number: None

PATIENT
  Age: 65 Year
  Sex: Female
  Weight: 71.8 kg

DRUGS (5)
  1. FAMOTIDINE. [Concomitant]
     Active Substance: FAMOTIDINE
  2. ACETAMINOPHEN. [Concomitant]
     Active Substance: ACETAMINOPHEN
  3. DIPHENHYDRAMINE. [Concomitant]
     Active Substance: DIPHENHYDRAMINE
  4. OCRELIZUMAB. [Suspect]
     Active Substance: OCRELIZUMAB
     Indication: MULTIPLE SCLEROSIS
     Dosage: OTHER FREQUENCY:EVERY 6 MONTHS;?
     Route: 041
     Dates: start: 20170727, end: 20180108
  5. METHYLPREDNISOLONE. [Concomitant]
     Active Substance: METHYLPREDNISOLONE

REACTIONS (2)
  - Palpitations [None]
  - Feeling hot [None]

NARRATIVE: CASE EVENT DATE: 20180108
